FAERS Safety Report 5401625-7 (Version None)
Quarter: 2007Q3

REPORT INFORMATION
  Report Type: 
  Country: None (occurrence: None)
  Receive Date: 20070731
  Receipt Date: 20070719
  Transmission Date: 20080115
  Serious: Yes (Hospitalization, Other)
  Sender: FDA-Public Use
  Company Number: US-PFIZER INC-2007026312

PATIENT
  Sex: Female
  Weight: 61.2 kg

DRUGS (11)
  1. CHANTIX [Suspect]
     Indication: SMOKING CESSATION THERAPY
     Route: 048
     Dates: start: 20070219, end: 20070201
  2. NEURONTIN [Concomitant]
  3. FENTANYL [Concomitant]
     Route: 062
  4. OXYCODONE HCL [Concomitant]
  5. CYMBALTA [Concomitant]
  6. LASIX [Concomitant]
  7. DYAZIDE [Concomitant]
  8. TOPROL-XL [Concomitant]
  9. NOVOLOG [Concomitant]
  10. LANTUS [Concomitant]
  11. AMITRIPTYLINE HCL [Concomitant]

REACTIONS (8)
  - BLOOD GLUCOSE INCREASED [None]
  - BLOOD IMMUNOGLOBULIN G DECREASED [None]
  - DEHYDRATION [None]
  - DIARRHOEA [None]
  - LOSS OF CONSCIOUSNESS [None]
  - MALAISE [None]
  - PYREXIA [None]
  - SKIN ULCER [None]
